FAERS Safety Report 8278177-X (Version None)
Quarter: 2012Q2

REPORT INFORMATION
  Report Type: 
  Country: None (occurrence: None)
  Receive Date: 20120412
  Receipt Date: 20110725
  Transmission Date: 20120825
  Serious: No
  Sender: FDA-Public Use
  Company Number: US-ASTRAZENECA-2011SE44154

PATIENT
  Age: 86 Year
  Sex: Female

DRUGS (4)
  1. NAPROXEN (ALEVE) [Concomitant]
  2. NEXIUM [Suspect]
     Indication: GASTROOESOPHAGEAL REFLUX DISEASE
     Route: 048
     Dates: start: 20080101
  3. NEXIUM [Suspect]
     Route: 048
  4. BUFFERIN [Concomitant]

REACTIONS (4)
  - MUSCLE SPASMS [None]
  - ABDOMINAL PAIN UPPER [None]
  - BACK INJURY [None]
  - FALL [None]
